FAERS Safety Report 11592450 (Version 1)
Quarter: 2015Q4

REPORT INFORMATION
  Report Type: Spontaneous
  Country: IT (occurrence: IT)
  Receive Date: 20151005
  Receipt Date: 20151005
  Transmission Date: 20160304
  Serious: Yes (Other)
  Sender: FDA-Public Use
  Company Number: IT-ACCORD-034084

PATIENT
  Age: 62 Year
  Sex: Female

DRUGS (1)
  1. CISPLATIN ACCORD [Suspect]
     Active Substance: CISPLATIN
     Indication: METASTASES TO LUNG
     Dosage: STRENGTH: 1 MG/ML
     Route: 042
     Dates: start: 20150917, end: 20150917

REACTIONS (2)
  - Infusion site haematoma [Recovered/Resolved]
  - Application site extravasation [Recovered/Resolved]

NARRATIVE: CASE EVENT DATE: 20150917
